FAERS Safety Report 15243059 (Version 1)
Quarter: 2018Q3

REPORT INFORMATION
  Report Type: Report from Study
  Country: MX (occurrence: MX)
  Receive Date: 20180806
  Receipt Date: 20180806
  Transmission Date: 20181010
  Serious: Yes (Other)
  Sender: FDA-Public Use
  Company Number: MX-ROCHE-2164556

PATIENT
  Age: 40 Year
  Sex: Female

DRUGS (3)
  1. KADCYLA [Suspect]
     Active Substance: ADO-TRASTUZUMAB EMTANSINE
     Indication: BREAST CANCER METASTATIC
     Dosage: CURRENTLY 9 CYCLES APPLIED. TREATMENT ONGOING.
     Route: 042
     Dates: start: 201807
  2. HERCEPTIN [Suspect]
     Active Substance: TRASTUZUMAB
     Indication: BREAST CANCER
     Dosage: 17 CYCLES ADMINISTERED
     Route: 042
     Dates: start: 2016, end: 201705
  3. TAMOXIFEN [Concomitant]
     Active Substance: TAMOXIFEN
     Dosage: TREATMENT SCHEDULED FOR 5 YEARS
     Route: 048

REACTIONS (5)
  - Feeling cold [Unknown]
  - Dizziness [Unknown]
  - Breast cancer [Unknown]
  - Nightmare [Unknown]
  - Fatigue [Unknown]

NARRATIVE: CASE EVENT DATE: 20180709
